FAERS Safety Report 4909045-6 (Version None)
Quarter: 2006Q1

REPORT INFORMATION
  Report Type: 
  Country: None (occurrence: None)
  Receive Date: 20060213
  Receipt Date: 20060120
  Transmission Date: 20060701
  Serious: Yes (Hospitalization)
  Sender: FDA-Public Use
  Company Number: US-AMGEN-US165608

PATIENT
  Sex: Male
  Weight: 73.1 kg

DRUGS (9)
  1. PALIFERMIN [Suspect]
     Indication: MUCOSAL INFLAMMATION
     Route: 042
     Dates: start: 20051209
  2. RADIATION THERAPY [Concomitant]
     Dates: start: 20051212
  3. CISPLATIN [Concomitant]
     Route: 042
     Dates: start: 20051212
  4. PERCOCET [Concomitant]
     Route: 065
  5. LEVAQUIN [Concomitant]
     Route: 048
  6. SENOKOT [Concomitant]
     Route: 065
  7. FLUCONAZOLE [Concomitant]
     Route: 065
  8. THORAZINE [Concomitant]
  9. LACTULOSE [Concomitant]

REACTIONS (6)
  - CONVULSION [None]
  - DIZZINESS [None]
  - GRAND MAL CONVULSION [None]
  - HYPERHIDROSIS [None]
  - LOSS OF CONSCIOUSNESS [None]
  - URINARY INCONTINENCE [None]
